FAERS Safety Report 9601924 (Version 1)
Quarter: 2013Q4

REPORT INFORMATION
  Report Type: Spontaneous
  Country: CH (occurrence: None)
  Receive Date: 20131002
  Receipt Date: 20131002
  Transmission Date: 20140711
  Serious: Yes (Hospitalization)
  Sender: FDA-Public Use
  Company Number: 2013P1019596

PATIENT
  Age: 56 Year
  Sex: 0
  Weight: 85 kg

DRUGS (1)
  1. LIDOCAINE [Suspect]
     Indication: LOCAL ANAESTHESIA

REACTIONS (11)
  - Dry mouth [None]
  - Hypoaesthesia oral [None]
  - Paraesthesia oral [None]
  - Dysphagia [None]
  - Dysaesthesia [None]
  - Dizziness [None]
  - Toxicity to various agents [None]
  - Gait disturbance [None]
  - Blood pressure increased [None]
  - Heart rate decreased [None]
  - Oxygen saturation decreased [None]
